FAERS Safety Report 25577711 (Version 1)
Quarter: 2025Q3

REPORT INFORMATION
  Report Type: Spontaneous
  Country: US (occurrence: US)
  Receive Date: 20250718
  Receipt Date: 20250718
  Transmission Date: 20251021
  Serious: No
  Sender: NOVO NORDISK
  Company Number: US-NOVOPROD-1370058

PATIENT
  Age: 61 Year
  Sex: Female

DRUGS (1)
  1. RYBELSUS [Suspect]
     Active Substance: SEMAGLUTIDE
     Indication: Product used for unknown indication
     Route: 048
     Dates: start: 202305, end: 202312

REACTIONS (4)
  - Weight increased [Unknown]
  - Glycosylated haemoglobin increased [Unknown]
  - Dyspepsia [Unknown]
  - Constipation [Unknown]
